FAERS Safety Report 10101274 (Version 2)
Quarter: 2014Q2

REPORT INFORMATION
  Report Type: Spontaneous
  Country: US (occurrence: US)
  Receive Date: 20140424
  Receipt Date: 20140515
  Transmission Date: 20141212
  Serious: Yes (Other)
  Sender: FDA-Public Use
  Company Number: US-PFIZER INC-2014110061

PATIENT
  Age: 59 Year
  Sex: Male
  Weight: 108.39 kg

DRUGS (2)
  1. SUTENT [Suspect]
     Indication: METASTATIC RENAL CELL CARCINOMA
     Dosage: 50 MG, CYCLIC (DAILY FOR 28 DAYS/OFF FOR 14DAYS)
     Dates: start: 200904
  2. LEVOTHYROXINE [Concomitant]
     Indication: THYROID DISORDER
     Dosage: 150 UG, DAILY

REACTIONS (15)
  - Hepatocellular injury [Unknown]
  - Renal failure chronic [Unknown]
  - Hepatic steatosis [Unknown]
  - Fatigue [Recovering/Resolving]
  - Arthralgia [Recovering/Resolving]
  - Diarrhoea [Recovering/Resolving]
  - Rash generalised [Recovering/Resolving]
  - Tenderness [Recovering/Resolving]
  - Skin discolouration [Unknown]
  - Chest discomfort [Unknown]
  - Musculoskeletal discomfort [Unknown]
  - Fatigue [Unknown]
  - Somnolence [Unknown]
  - Hypertension [Unknown]
  - Hypothyroidism [Unknown]
